FAERS Safety Report 7901008-1 (Version None)
Quarter: 2011Q4

REPORT INFORMATION
  Report Type: 
  Country: None (occurrence: None)
  Receive Date: 20111108
  Receipt Date: 20111104
  Transmission Date: 20120403
  Serious: Yes (Life-Threatening)
  Sender: FDA-Public Use
  Company Number: FR-PFIZER INC-2011269991

PATIENT
  Age: 69 Year
  Sex: Female

DRUGS (17)
  1. PROTELOS [Suspect]
     Indication: OSTEOPOROSIS
     Dosage: 1 SACHET, 1X/DAY
     Route: 048
     Dates: start: 20100101
  2. FENOFIBRATE [Suspect]
     Dosage: 1 DF, 1X/DAY
  3. XOLAIR [Suspect]
     Dosage: UNK (DOSE REDUCED)
     Dates: start: 20090801, end: 20100401
  4. CALCIUM CARBONATE [Suspect]
     Dosage: 1 DF, 1X/DAY
  5. SINGULAIR [Suspect]
     Indication: ASTHMA
     Dosage: 10 MG, DAILY
     Route: 048
  6. ALDACTONE [Suspect]
     Dosage: 25 MG, DAILY
  7. BRICANYL [Suspect]
     Indication: ASTHMA
     Dosage: 5 MG, 6X/DAY
     Route: 055
     Dates: start: 20080101
  8. PANTOPRAZOLE SODIUM [Suspect]
     Dosage: 40 MG, DAILY
  9. PREDNISONE [Suspect]
     Indication: ASTHMA
     Dosage: 20 MG, DAILY
     Route: 048
     Dates: start: 20060101
  10. UTEPLEX [Suspect]
  11. DESLORATADINE [Suspect]
     Dosage: 1 DF, 1X/DAY
  12. XOLAIR [Suspect]
     Indication: ASTHMA
     Dosage: 300 MG, EVERY TWO WEEKS
     Route: 058
     Dates: start: 20080710, end: 20090801
  13. SYMBICORT [Suspect]
     Indication: ASTHMA
     Dosage: 2 PUFF/DAY
     Route: 055
     Dates: start: 20100101
  14. XOLAIR [Suspect]
     Dosage: UNK (DOSE INCREASED)
     Dates: start: 20100401, end: 20110805
  15. ATROVENT [Suspect]
     Indication: ASTHMA
     Dosage: 0.5 MG, 3X/DAY
     Route: 055
     Dates: start: 20080101
  16. DEDROGYL [Suspect]
     Dosage: 3 GTT, 1X/DAY
  17. ACETAMINOPHEN [Suspect]
     Dosage: UNK

REACTIONS (1)
  - NEOPLASM MALIGNANT [None]
